FAERS Safety Report 20948101 (Version 1)
Quarter: 2022Q2

REPORT INFORMATION
  Report Type: Spontaneous
  Country: JP (occurrence: JP)
  Receive Date: 20220611
  Receipt Date: 20220611
  Transmission Date: 20220721
  Serious: Yes (Other)
  Sender: FDA-Public Use
  Company Number: JP-LUPIN PHARMACEUTICALS INC.-2022-08494

PATIENT
  Age: 8 Year
  Sex: Male

DRUGS (29)
  1. AZACITIDINE [Suspect]
     Active Substance: AZACITIDINE
     Indication: Medulloblastoma
     Dosage: UNK, INITIAL DOSAGE NOT STATED
     Route: 065
  2. AZACITIDINE [Suspect]
     Active Substance: AZACITIDINE
     Indication: Osteosarcoma
     Dosage: UNK, TOTAL DOSE: 182 MG/M2
     Route: 065
  3. AZACITIDINE [Suspect]
     Active Substance: AZACITIDINE
     Indication: Myelodysplastic syndrome
  4. CYTARABINE [Suspect]
     Active Substance: CYTARABINE
     Indication: Medulloblastoma
     Dosage: UNK, INITIAL DOSAGE NOT STATED
     Route: 065
  5. CYTARABINE [Suspect]
     Active Substance: CYTARABINE
     Indication: Osteosarcoma
     Dosage: UNK, TOTAL DOSE: 50 MG/M2
     Route: 065
  6. CYTARABINE [Suspect]
     Active Substance: CYTARABINE
     Indication: Myelodysplastic syndrome
  7. CYCLOPHOSPHAMIDE [Concomitant]
     Active Substance: CYCLOPHOSPHAMIDE
     Indication: Medulloblastoma
     Dosage: TOTAL DOSE: 12G/M2
     Route: 065
  8. CISPLATIN [Concomitant]
     Active Substance: CISPLATIN
     Indication: Medulloblastoma
     Dosage: UNK, TOTAL DOSE RECEIVED PRIOR TO OSTEOSARCOMA: 360 MG/M2; TOTAL DOSE RECEIVED PRIOR TO MDS: 500 MG/
     Route: 065
  9. CISPLATIN [Concomitant]
     Active Substance: CISPLATIN
     Indication: Osteosarcoma
  10. ETOPOSIDE [Concomitant]
     Active Substance: ETOPOSIDE
     Indication: Medulloblastoma
     Dosage: UNK, TOTAL DOSE: 2G/M2
     Route: 065
  11. VINCRISTINE [Concomitant]
     Active Substance: VINCRISTINE
     Indication: Medulloblastoma
     Dosage: UNK, TOTAL DOSE: 15 MG/M2
     Route: 065
  12. THIOTEPA [Concomitant]
     Active Substance: THIOTEPA
     Indication: Medulloblastoma
     Dosage: UNK, TOTAL DOSE: 26 MG/KG
     Route: 065
  13. MELPHALAN [Concomitant]
     Active Substance: MELPHALAN
     Indication: Medulloblastoma
     Dosage: UNK, RECEIVED PRIOR TO OSTEOSARCOMA: TOTAL DOSE OF 6 MG/KG
     Route: 065
  14. MELPHALAN [Concomitant]
     Active Substance: MELPHALAN
     Indication: Osteosarcoma
     Dosage: UNK, RECEIVED PRIOR TO BASAL CELL CARCINOMA AND BENIGN ODONTOGENIC KERATOCYST: 140 MG/M2
     Route: 065
  15. MELPHALAN [Concomitant]
     Active Substance: MELPHALAN
     Indication: Myelodysplastic syndrome
  16. DOXORUBICIN [Concomitant]
     Active Substance: DOXORUBICIN
     Indication: Osteosarcoma
     Dosage: UNK, TOTAL DOSE: 180 MG/M2
     Route: 065
  17. DOXORUBICIN [Concomitant]
     Active Substance: DOXORUBICIN
     Indication: Medulloblastoma
  18. METHOTREXATE [Concomitant]
     Active Substance: METHOTREXATE
     Indication: Osteosarcoma
     Dosage: UNK, TOTAL DOSE: 216G/M2
     Route: 065
  19. METHOTREXATE [Concomitant]
     Active Substance: METHOTREXATE
     Indication: Medulloblastoma
  20. IFOSFAMIDE [Concomitant]
     Active Substance: IFOSFAMIDE
     Indication: Osteosarcoma
     Dosage: UNK, TOTAL: 36G/M2
     Route: 065
  21. IFOSFAMIDE [Concomitant]
     Active Substance: IFOSFAMIDE
     Indication: Medulloblastoma
  22. PIRARUBICIN [Concomitant]
     Active Substance: PIRARUBICIN
     Indication: Osteosarcoma
     Dosage: UNK, TOTAL: 585 MG/M2
     Route: 065
  23. PIRARUBICIN [Concomitant]
     Active Substance: PIRARUBICIN
     Indication: Medulloblastoma
  24. BUSULFAN [Concomitant]
     Active Substance: BUSULFAN
     Indication: Medulloblastoma
     Dosage: UNK, TOTAL DOSE: 6.4 MG/KG
     Route: 065
  25. BUSULFAN [Concomitant]
     Active Substance: BUSULFAN
     Indication: Osteosarcoma
  26. BUSULFAN [Concomitant]
     Active Substance: BUSULFAN
     Indication: Myelodysplastic syndrome
  27. FLUDARABINE [Concomitant]
     Active Substance: FLUDARABINE PHOSPHATE
     Indication: Medulloblastoma
     Dosage: 120 MILLIGRAM/SQ. METER
     Route: 065
  28. FLUDARABINE [Concomitant]
     Active Substance: FLUDARABINE PHOSPHATE
     Indication: Osteosarcoma
  29. FLUDARABINE [Concomitant]
     Active Substance: FLUDARABINE PHOSPHATE
     Indication: Myelodysplastic syndrome

REACTIONS (2)
  - Treatment failure [Unknown]
  - Off label use [Unknown]
